FAERS Safety Report 7011384-2 (Version None)
Quarter: 2010Q3

REPORT INFORMATION
  Report Type: 
  Country: None (occurrence: None)
  Receive Date: 20100923
  Receipt Date: 20090501
  Transmission Date: 20110219
  Serious: No
  Sender: FDA-Public Use
  Company Number: US-WYE-H07794409

PATIENT
  Sex: Female
  Weight: 78.09 kg

DRUGS (3)
  1. PREMARIN [Suspect]
     Indication: HORMONE REPLACEMENT THERAPY
     Dosage: 0.625 MG DAILY
     Route: 048
     Dates: start: 20090107, end: 20090121
  2. ADVIL LIQUI-GELS [Concomitant]
     Dosage: PRN
  3. RESTASIS [Concomitant]
     Route: 048

REACTIONS (3)
  - BLOOD GLUCOSE FLUCTUATION [None]
  - FEELING COLD [None]
  - MENTAL IMPAIRMENT [None]
